FAERS Safety Report 7688542-7 (Version None)
Quarter: 2011Q3

REPORT INFORMATION
  Report Type: 
  Country: None (occurrence: None)
  Receive Date: 20110817
  Receipt Date: 20110817
  Transmission Date: 20111222
  Serious: Yes (Hospitalization)
  Sender: FDA-Public Use
  Company Number: None

PATIENT
  Sex: Female
  Weight: 65 kg

DRUGS (2)
  1. CIPROFLOXACIN [Suspect]
     Indication: GASTROENTERITIS
     Dosage: 500 MG
     Route: 048
     Dates: start: 20110707, end: 20110711
  2. OFLOXACIN [Concomitant]
     Indication: GASTROENTERITIS
     Dosage: 400 MG
     Route: 048
     Dates: start: 20110711, end: 20110725

REACTIONS (1)
  - PANCYTOPENIA [None]
